FAERS Safety Report 20903743 (Version 2)
Quarter: 2022Q2

REPORT INFORMATION
  Report Type: Other
  Country: QA (occurrence: QA)
  Receive Date: 20220602
  Receipt Date: 20220614
  Transmission Date: 20220721
  Serious: Yes (Other)
  Sender: FDA-Public Use
  Company Number: QA-DEXPHARM-20220836

PATIENT
  Age: 0 Year
  Sex: Female

DRUGS (3)
  1. DEXAMETHASONE [Suspect]
     Active Substance: DEXAMETHASONE
     Indication: Haemophagocytic lymphohistiocytosis
  2. CYCLOSPORINE [Suspect]
     Active Substance: CYCLOSPORINE
     Indication: Haemophagocytic lymphohistiocytosis
  3. ETOPOSIDE [Suspect]
     Active Substance: ETOPOSIDE
     Indication: Haemophagocytic lymphohistiocytosis

REACTIONS (7)
  - Venoocclusive liver disease [Recovered/Resolved]
  - Rectal haemorrhage [Unknown]
  - Weight increased [Unknown]
  - Hepatomegaly [Unknown]
  - Ascites [Unknown]
  - Thrombocytopenia [Unknown]
  - Drug interaction [Unknown]
